FAERS Safety Report 13943920 (Version 1)
Quarter: 2017Q3

REPORT INFORMATION
  Report Type: Spontaneous
  Country: DE (occurrence: DE)
  Receive Date: 20170907
  Receipt Date: 20170907
  Transmission Date: 20171128
  Serious: Yes (Death, Life-Threatening, Hospitalization)
  Sender: FDA-Public Use
  Company Number: DE-AUROBINDO-AUR-APL-2010-00095

PATIENT
  Age: 61 Year
  Sex: Male
  Weight: 70 kg

DRUGS (33)
  1. SIMVASTATIN 20MG [Suspect]
     Active Substance: SIMVASTATIN
     Indication: PRODUCT USED FOR UNKNOWN INDICATION
     Dosage: 20 MG,ONCE A DAY,
     Route: 048
     Dates: start: 20091025, end: 20091027
  2. DELIX                              /00885601/ [Suspect]
     Active Substance: RAMIPRIL
     Indication: PRODUCT USED FOR UNKNOWN INDICATION
     Dosage: 2.5 MG,ONCE A DAY,
     Route: 048
     Dates: start: 20091021, end: 20091024
  3. NAC                                /00082801/ [Concomitant]
     Indication: PRODUCT USED FOR UNKNOWN INDICATION
     Dosage: 600 MG,ONCE A DAY,
     Route: 048
     Dates: start: 20091020, end: 20091028
  4. BERLINSULIN H [Concomitant]
     Dosage: 44 IU,ONCE A DAY,
     Route: 058
     Dates: start: 20091025, end: 20091025
  5. BERLINSULIN H [Concomitant]
     Dosage: 50 IU,ONCE A DAY,
     Route: 058
     Dates: start: 20091026, end: 20091028
  6. KALINOR-BRAUSETABLETTEN [Concomitant]
     Active Substance: POTASSIUM CARBONATE\POTASSIUM CITRATE
     Dosage: 1 DF,TWO TIMES A DAY,
     Route: 048
     Dates: start: 20091024, end: 20091024
  7. EUNERPAN [Suspect]
     Active Substance: MELPERONE HYDROCHLORIDE
     Indication: PRODUCT USED FOR UNKNOWN INDICATION
     Dosage: 25 MG,ONCE A DAY,
     Route: 048
     Dates: start: 20091020, end: 20091027
  8. AGOPTON [Suspect]
     Active Substance: LANSOPRAZOLE
     Indication: PRODUCT USED FOR UNKNOWN INDICATION
     Dosage: 15 MG,ONCE A DAY,
     Route: 048
     Dates: start: 20091020, end: 20091028
  9. ARTERENOL [Suspect]
     Active Substance: NORADRENALINE HYDROCHLORIDE
     Indication: PRODUCT USED FOR UNKNOWN INDICATION
     Dosage: UNK UNK,UNK,,10 MG/50 ML NACL 0.9%
     Route: 051
     Dates: start: 20091025, end: 20091025
  10. FLUNITRAZEPAM [Suspect]
     Active Substance: FLUNITRAZEPAM
     Indication: PRODUCT USED FOR UNKNOWN INDICATION
     Dosage: 1 MG,ONCE A DAY,
     Route: 048
     Dates: start: 20091028, end: 20091028
  11. BERLINSULIN H [Concomitant]
     Dosage: 22 IU,ONCE A DAY,
     Route: 058
     Dates: start: 20091021, end: 20091024
  12. KALINOR-BRAUSETABLETTEN [Concomitant]
     Active Substance: POTASSIUM CARBONATE\POTASSIUM CITRATE
     Dosage: 1 DF,TWO TIMES A DAY,
     Route: 048
     Dates: start: 20091025, end: 20091025
  13. ZIENAM [Suspect]
     Active Substance: CILASTATIN SODIUM\IMIPENEM
     Indication: PRODUCT USED FOR UNKNOWN INDICATION
     Dosage: 1 G,3 TIMES A DAY,
     Route: 042
     Dates: start: 20091028, end: 20091028
  14. ZOPICLONE 7.5MG [Suspect]
     Active Substance: ZOPICLONE
     Indication: PRODUCT USED FOR UNKNOWN INDICATION
     Dosage: 7.5 MG,ONCE A DAY,
     Route: 048
     Dates: start: 20091020, end: 20091026
  15. TAVOR (LORAZEPAM) [Suspect]
     Active Substance: LORAZEPAM
     Dosage: 1 MG,TWO TIMES A DAY,
     Route: 048
     Dates: start: 20091027, end: 20091027
  16. HAEMITON COMPOSITUM [Suspect]
     Active Substance: CLONIDINE\HYDROCHLOROTHIAZIDE\TRIAMTERENE
     Indication: PRODUCT USED FOR UNKNOWN INDICATION
     Dosage: 75 ?G,TWO TIMES A DAY,
     Route: 048
     Dates: start: 20091020, end: 20091024
  17. ARTERENOL [Suspect]
     Active Substance: NORADRENALINE HYDROCHLORIDE
     Dosage: UNK UNK,UNK,,10 MG/50 ML NACL 0.9%
     Route: 051
     Dates: start: 20091028, end: 20091028
  18. KALINOR-BRAUSETABLETTEN [Concomitant]
     Active Substance: POTASSIUM CARBONATE\POTASSIUM CITRATE
     Indication: PRODUCT USED FOR UNKNOWN INDICATION
     Dosage: 1 DF,3 TIMES A DAY,
     Route: 048
     Dates: start: 20091021, end: 20091023
  19. FUROSEMIDE. [Suspect]
     Active Substance: FUROSEMIDE
     Indication: PRODUCT USED FOR UNKNOWN INDICATION
     Dosage: 20 MG,3 TIMES A DAY,
     Route: 042
     Dates: start: 20091028, end: 20091028
  20. ARIXTRA [Suspect]
     Active Substance: FONDAPARINUX SODIUM
     Indication: PRODUCT USED FOR UNKNOWN INDICATION
     Dosage: 2.5 MG,ONCE A DAY,
     Route: 058
     Dates: start: 20091020, end: 20091028
  21. TOREM                              /01036501/ [Suspect]
     Active Substance: TORSEMIDE
     Indication: PRODUCT USED FOR UNKNOWN INDICATION
     Dosage: 10 MG,3 TIMES A DAY,
     Route: 048
     Dates: start: 20091020, end: 20091020
  22. TOREM                              /01036501/ [Suspect]
     Active Substance: TORSEMIDE
     Dosage: 10 MG,ONCE A DAY,
     Route: 048
     Dates: start: 20091023, end: 20091026
  23. PIPERACILLIN W/SULBACTAM [Suspect]
     Active Substance: PIPERACILLIN\SULBACTAM
     Indication: PRODUCT USED FOR UNKNOWN INDICATION
     Dosage: 1 DF,3 TIMES A DAY,
     Route: 042
     Dates: start: 20091025, end: 20091027
  24. BERLINSULIN H [Concomitant]
     Indication: PRODUCT USED FOR UNKNOWN INDICATION
     Dosage: 48 IU,ONCE A DAY,
     Route: 058
     Dates: start: 20091020
  25. KALINOR-BRAUSETABLETTEN [Concomitant]
     Active Substance: POTASSIUM CARBONATE\POTASSIUM CITRATE
     Dosage: 1 DF,TWO TIMES A DAY,
     Route: 048
     Dates: start: 20091026, end: 20091026
  26. ACETYLSALICYLIC ACID [Suspect]
     Active Substance: ASPIRIN
     Indication: PRODUCT USED FOR UNKNOWN INDICATION
     Dosage: 100 MG,ONCE A DAY,
     Route: 048
     Dates: start: 20091020, end: 20091028
  27. FINLEPSIN [Suspect]
     Active Substance: CARBAMAZEPINE
     Indication: PRODUCT USED FOR UNKNOWN INDICATION
     Dosage: 200 MG,3 TIMES A DAY,
     Route: 048
     Dates: start: 20091020, end: 20091028
  28. BELOC-ZOK COMP [Suspect]
     Active Substance: HYDROCHLOROTHIAZIDE\METOPROLOL SUCCINATE
     Indication: PRODUCT USED FOR UNKNOWN INDICATION
     Dosage: 70.75 MG,UNK,,47.5MG AND 23.25MG
     Route: 048
     Dates: start: 20091020, end: 20091024
  29. TAVOR (LORAZEPAM) [Suspect]
     Active Substance: LORAZEPAM
     Indication: PRODUCT USED FOR UNKNOWN INDICATION
     Dosage: 1 MG,FOUR TIMES/DAY,
     Route: 048
     Dates: start: 20091020, end: 20091026
  30. TOREM                              /01036501/ [Suspect]
     Active Substance: TORSEMIDE
     Dosage: 10 MG,TWO TIMES A DAY,
     Route: 048
     Dates: start: 20091021, end: 20091022
  31. INSULIN BASAL [Concomitant]
     Active Substance: INSULIN NOS
     Indication: PRODUCT USED FOR UNKNOWN INDICATION
     Dosage: 22 IU,ONCE A DAY,
     Route: 058
     Dates: start: 20091020, end: 20091021
  32. KALINOR-BRAUSETABLETTEN [Concomitant]
     Active Substance: POTASSIUM CARBONATE\POTASSIUM CITRATE
     Dosage: 1 DF,3 TIMES A DAY,
     Route: 048
     Dates: start: 20091027, end: 20091027
  33. TOREM                              /01036501/ [Suspect]
     Active Substance: TORSEMIDE
     Dosage: 10 MG,3 TIMES A DAY,
     Route: 048
     Dates: start: 20091027, end: 20091027

REACTIONS (4)
  - Acute kidney injury [Fatal]
  - Chromaturia [None]
  - Rhabdomyolysis [Fatal]
  - Sepsis [Unknown]

NARRATIVE: CASE EVENT DATE: 200910
